FAERS Safety Report 15405267 (Version 3)
Quarter: 2018Q4

REPORT INFORMATION
  Report Type: Spontaneous
  Country: US (occurrence: US)
  Receive Date: 20180920
  Receipt Date: 20181115
  Transmission Date: 20190204
  Serious: Yes (Death)
  Sender: FDA-Public Use
  Company Number: US-ROCHE-2186073

PATIENT
  Age: 70 Year
  Sex: Male

DRUGS (27)
  1. CORTISPORIN OTIC SOLUTION [Concomitant]
     Dosage: 3.5-10000-1 OTIC SOLUTION
     Route: 065
  2. OCREVUS [Suspect]
     Active Substance: OCRELIZUMAB
     Route: 042
     Dates: start: 20170629
  3. OCREVUS [Suspect]
     Active Substance: OCRELIZUMAB
     Route: 042
     Dates: start: 20180117
  4. TRILEPTAL [Concomitant]
     Active Substance: OXCARBAZEPINE
     Route: 065
  5. ZOCOR [Concomitant]
     Active Substance: SIMVASTATIN
     Dosage: 20 MG TABLET
     Route: 065
  6. MIRALAX [Concomitant]
     Active Substance: POLYETHYLENE GLYCOL 3350
  7. LIORESAL [Concomitant]
     Active Substance: BACLOFEN
     Route: 065
  8. NIZORAL [Concomitant]
     Active Substance: KETOCONAZOLE
     Route: 065
  9. LUMIGAN [Concomitant]
     Active Substance: BIMATOPROST
     Route: 047
  10. CYMBALTA [Concomitant]
     Active Substance: DULOXETINE HYDROCHLORIDE
     Dosage: 60 MG CAPSULE
     Route: 065
  11. CLOBEX [Concomitant]
     Active Substance: CLOBETASOL PROPIONATE
     Dosage: 0.05 % SPRAY
     Route: 065
  12. LINZESS [Concomitant]
     Active Substance: LINACLOTIDE
     Route: 065
  13. PRILOSEC [Concomitant]
     Active Substance: OMEPRAZOLE MAGNESIUM
     Dosage: 20 MG CAPSULE
     Route: 065
  14. FLOMAX [Concomitant]
     Active Substance: TAMSULOSIN HYDROCHLORIDE
     Dosage: 0.4 MG CAPSULE
     Route: 065
  15. ZANAFLEX [Concomitant]
     Active Substance: TIZANIDINE HYDROCHLORIDE
     Route: 065
  16. OCREVUS [Suspect]
     Active Substance: OCRELIZUMAB
     Indication: PRIMARY PROGRESSIVE MULTIPLE SCLEROSIS
     Route: 042
     Dates: start: 20170616
  17. OCREVUS [Suspect]
     Active Substance: OCRELIZUMAB
     Route: 042
     Dates: start: 20180718
  18. VALIUM [Concomitant]
     Active Substance: DIAZEPAM
     Route: 048
  19. DURAGESIC [Concomitant]
     Active Substance: FENTANYL
     Dosage: 100 MCG/HR PATCH
     Route: 065
  20. HYOSCYAMINE. [Concomitant]
     Active Substance: HYOSCYAMINE
     Dosage: ORALLY DISSOLVING TABLET
     Route: 048
  21. NORCO [Concomitant]
     Active Substance: ACETAMINOPHEN\HYDROCODONE BITARTRATE
     Dosage: 10-325 MG TABLET
     Route: 065
  22. NEURONTIN [Concomitant]
     Active Substance: GABAPENTIN
     Dosage: 600 MG TABLET
     Route: 065
  23. DEMADEX [Concomitant]
     Active Substance: TORSEMIDE
     Route: 065
  24. ELIQUIS [Suspect]
     Active Substance: APIXABAN
     Indication: ATRIAL FIBRILLATION
     Route: 065
  25. TRILEPTAL [Concomitant]
     Active Substance: OXCARBAZEPINE
     Route: 065
  26. SEROQUEL [Concomitant]
     Active Substance: QUETIAPINE FUMARATE
     Dosage: 50 MG TABLET
     Route: 065
  27. DEPO-TESTOSTERONE [Concomitant]
     Active Substance: TESTOSTERONE CYPIONATE
     Dosage: 200
     Route: 065

REACTIONS (1)
  - Subdural haematoma [Fatal]
